FAERS Safety Report 5262091-8 (Version None)
Quarter: 2007Q1

REPORT INFORMATION
  Report Type: 
  Country: None (occurrence: None)
  Receive Date: 20070311
  Receipt Date: 20070228
  Transmission Date: 20070707
  Serious: No
  Sender: FDA-Public Use
  Company Number: 2006UW08125

PATIENT
  Sex: Female
  Weight: 109.1 kg

DRUGS (3)
  1. SEROQUEL [Suspect]
     Indication: BIPOLAR I DISORDER
     Dosage: 50 MG QHS + 25 MG QAM
     Route: 048
  2. RISPERDAL [Concomitant]
  3. WELLBUTRIN XL [Concomitant]

REACTIONS (2)
  - DIABETES MELLITUS [None]
  - INJURY [None]
